FAERS Safety Report 6282722-3 (Version None)
Quarter: 2009Q3

REPORT INFORMATION
  Report Type: 
  Country: None (occurrence: None)
  Receive Date: 20090724
  Receipt Date: 20090715
  Transmission Date: 20100115
  Serious: Yes (Hospitalization, Other)
  Sender: FDA-Public Use
  Company Number: US-ELI_LILLY_AND_COMPANY-US200907003409

PATIENT
  Sex: Male
  Weight: 88.889 kg

DRUGS (3)
  1. STRATTERA [Suspect]
     Indication: ATTENTION DEFICIT/HYPERACTIVITY DISORDER
     Dosage: UNK, UNKNOWN
     Route: 065
     Dates: start: 20080601
  2. STRATTERA [Suspect]
     Dosage: 80 MG, DAILY (1/D)
     Route: 065
     Dates: end: 20080723
  3. STRATTERA [Suspect]
     Dosage: 100 MG, DAILY (1/D)
     Route: 065
     Dates: start: 20080723

REACTIONS (10)
  - AGGRESSION [None]
  - ANGER [None]
  - HOMICIDE [None]
  - INTENTIONAL SELF-INJURY [None]
  - IRRITABILITY [None]
  - MENTAL DISORDER [None]
  - MOOD ALTERED [None]
  - PHYSICAL ASSAULT [None]
  - SOCIAL AVOIDANT BEHAVIOUR [None]
  - SUICIDE ATTEMPT [None]
